FAERS Safety Report 21557404 (Version 1)
Quarter: 2022Q4

REPORT INFORMATION
  Report Type: Report from Study
  Country: MX (occurrence: MX)
  Receive Date: 20221105
  Receipt Date: 20221105
  Transmission Date: 20230113
  Serious: Yes (Other)
  Sender: FDA-Public Use
  Company Number: MX-002147023-NVSC2022MX249446

PATIENT
  Age: 64 Year
  Sex: Female

DRUGS (2)
  1. EXFORGE HCT [Suspect]
     Active Substance: AMLODIPINE BESYLATE\HYDROCHLOROTHIAZIDE\VALSARTAN
     Indication: Blood pressure measurement
     Dosage: 1 DOSAGE FORM, QD
     Route: 048
     Dates: start: 201811
  2. EXFORGE HCT [Suspect]
     Active Substance: AMLODIPINE BESYLATE\HYDROCHLOROTHIAZIDE\VALSARTAN
     Dosage: 1 DOSAGE FORM, BID (THE MORNING AND AT NIGHT)
     Route: 048

REACTIONS (11)
  - Alcohol poisoning [Unknown]
  - Cerebral disorder [Unknown]
  - Fall [Recovered/Resolved]
  - Gait disturbance [Unknown]
  - Dysstasia [Unknown]
  - Breast inflammation [Unknown]
  - Blood pressure increased [Unknown]
  - Dizziness [Unknown]
  - Fall [Recovering/Resolving]
  - Limb injury [Unknown]
  - Off label use [Unknown]

NARRATIVE: CASE EVENT DATE: 20181101
